FAERS Safety Report 4814068-1 (Version None)
Quarter: 2005Q4

REPORT INFORMATION
  Report Type: 
  Country: None (occurrence: None)
  Receive Date: 20051028
  Receipt Date: 20051017
  Transmission Date: 20060501
  Serious: Yes (Hospitalization)
  Sender: FDA-Public Use
  Company Number: 2005SE05901

PATIENT
  Age: 78 Year
  Sex: Male
  Weight: 61 kg

DRUGS (10)
  1. BLOPRESS TABLETS 8 [Suspect]
     Indication: HYPERTENSION
     Route: 048
     Dates: start: 20050519, end: 20050607
  2. TENORMIN [Concomitant]
     Route: 048
     Dates: end: 20050603
  3. TENORMIN [Concomitant]
     Route: 048
     Dates: start: 20050604, end: 20050604
  4. NUCOSTA [Concomitant]
     Route: 048
  5. FRANDOL [Concomitant]
     Route: 048
  6. ASPIRIN [Concomitant]
     Route: 048
  7. MEVALOTIN [Concomitant]
     Route: 048
  8. ALLOPURINOL [Concomitant]
     Route: 048
  9. NORVASC [Concomitant]
     Route: 048
  10. LASIX [Concomitant]
     Route: 048

REACTIONS (6)
  - CONVULSION [None]
  - DEPRESSED LEVEL OF CONSCIOUSNESS [None]
  - DIZZINESS [None]
  - HYPERKALAEMIA [None]
  - MALAISE [None]
  - SICK SINUS SYNDROME [None]
